FAERS Safety Report 10729283 (Version 1)
Quarter: 2015Q1

REPORT INFORMATION
  Report Type: Spontaneous
  Country: US (occurrence: None)
  Receive Date: 20150120
  Receipt Date: 20150120
  Transmission Date: 20150721
  Serious: No
  Sender: FDA-Public Use
  Company Number: None

PATIENT
  Age: 56 Year
  Sex: Female
  Weight: 70.31 kg

DRUGS (2)
  1. ANASTROZOLE 1 MG [Suspect]
     Active Substance: ANASTROZOLE
     Indication: BLOOD OESTROGEN
     Dosage: 1 PILL ONCE DAILY TAKEN BY MOUTH
     Route: 048
     Dates: start: 20140612
  2. ANASTROZOLE 1 MG [Suspect]
     Active Substance: ANASTROZOLE
     Indication: BREAST CANCER
     Dosage: 1 PILL ONCE DAILY TAKEN BY MOUTH
     Route: 048
     Dates: start: 20140612

REACTIONS (3)
  - Psoriasis [None]
  - Drug ineffective [None]
  - Alopecia [None]

NARRATIVE: CASE EVENT DATE: 20141201
